FAERS Safety Report 7493663-8 (Version None)
Quarter: 2011Q2

REPORT INFORMATION
  Report Type: 
  Country: None (occurrence: None)
  Receive Date: 20110520
  Receipt Date: 20110507
  Transmission Date: 20111010
  Serious: Yes (Other)
  Sender: FDA-Public Use
  Company Number: US-JNJFOC-20110504898

PATIENT
  Age: 28 Year
  Sex: Female
  Weight: 54.43 kg

DRUGS (2)
  1. BENADRYL [Suspect]
     Indication: FOOD ALLERGY
     Dosage: ONE TABLET
     Route: 048
     Dates: start: 19930801, end: 19930801
  2. BENADRYL [Suspect]
     Route: 048

REACTIONS (4)
  - ROAD TRAFFIC ACCIDENT [None]
  - SOMNOLENCE [None]
  - FATIGUE [None]
  - OFF LABEL USE [None]
